FAERS Safety Report 18912822 (Version 1)
Quarter: 2021Q1

REPORT INFORMATION
  Report Type: Other
  Country: US (occurrence: US)
  Receive Date: 20210219
  Receipt Date: 20210219
  Transmission Date: 20210420
  Serious: Yes (Death, Other)
  Sender: FDA-Public Use
  Company Number: US-ROCHE-2767411

PATIENT

DRUGS (2)
  1. TOCILIZUMAB. [Suspect]
     Active Substance: TOCILIZUMAB
     Indication: ACUTE RESPIRATORY FAILURE
  2. TOCILIZUMAB. [Suspect]
     Active Substance: TOCILIZUMAB
     Indication: COVID-19 PNEUMONIA
     Route: 065

REACTIONS (8)
  - Staphylococcal infection [Unknown]
  - Intentional product use issue [Unknown]
  - Enterobacter infection [Unknown]
  - Streptococcal infection [Unknown]
  - Enterococcal infection [Unknown]
  - Off label use [Unknown]
  - Sepsis [Fatal]
  - Candida infection [Unknown]
